FAERS Safety Report 25405836 (Version 1)
Quarter: 2025Q2

REPORT INFORMATION
  Report Type: Spontaneous
  Country: KR (occurrence: KR)
  Receive Date: 20250606
  Receipt Date: 20250606
  Transmission Date: 20250716
  Serious: Yes (Death, Other)
  Sender: MALLINCKRODT
  Company Number: KR-MALLINCKRODT-MNK202503385

PATIENT
  Age: 1 Day
  Sex: Male
  Weight: 0.3 kg

DRUGS (1)
  1. NITRIC OXIDE [Suspect]
     Active Substance: NITRIC OXIDE
     Indication: Newborn persistent pulmonary hypertension
     Route: 055
     Dates: start: 20250512, end: 20250529

REACTIONS (7)
  - Disseminated intravascular coagulation [Fatal]
  - Thrombocytopenia [Unknown]
  - Bradycardia [Unknown]
  - Hypotension [Unknown]
  - Cardio-respiratory arrest [Unknown]
  - Agitation [Unknown]
  - Product use issue [Unknown]

NARRATIVE: CASE EVENT DATE: 20250512
